FAERS Safety Report 7659520-9 (Version None)
Quarter: 2011Q3

REPORT INFORMATION
  Report Type: 
  Country: None (occurrence: None)
  Receive Date: 20110805
  Receipt Date: 20110802
  Transmission Date: 20111222
  Serious: Yes (Hospitalization)
  Sender: FDA-Public Use
  Company Number: US-BAYER-2011-068907

PATIENT
  Age: 73 Year
  Sex: Female

DRUGS (11)
  1. WARFARIN SODIUM [Suspect]
     Indication: ATRIAL FIBRILLATION
  2. METOPROLOL TARTRATE [Concomitant]
  3. ACETYLSALICYLIC ACID SRT [Suspect]
     Indication: ATRIAL FIBRILLATION
  4. CLOPIDOGREL [Suspect]
     Indication: ATRIAL FIBRILLATION
  5. WARFARIN SODIUM [Suspect]
     Indication: CORONARY ARTERIAL STENT INSERTION
     Route: 048
  6. LISINOPRIL [Concomitant]
  7. ACETYLSALICYLIC ACID SRT [Suspect]
     Indication: CORONARY ARTERIAL STENT INSERTION
     Route: 048
  8. DILTIAZEM [Concomitant]
     Route: 048
  9. SIMVASTATIN [Concomitant]
  10. CLOPIDOGREL [Suspect]
     Indication: CORONARY ARTERIAL STENT INSERTION
     Route: 048
  11. GLYBURIDE [Concomitant]

REACTIONS (4)
  - PAIN IN EXTREMITY [None]
  - NEUROPATHY PERIPHERAL [None]
  - RETROPERITONEAL HAEMORRHAGE [None]
  - GAIT DISTURBANCE [None]
